FAERS Safety Report 9458780 (Version 1)
Quarter: 2013Q3

REPORT INFORMATION
  Report Type: Report from Study
  Country: US (occurrence: US)
  Receive Date: 20130814
  Receipt Date: 20130814
  Transmission Date: 20140515
  Serious: Yes (Hospitalization, Other)
  Sender: FDA-Public Use
  Company Number: US-BRISTOL-MYERS SQUIBB COMPANY-19019199

PATIENT
  Age: 76 Year
  Sex: Male
  Weight: 90.9 kg

DRUGS (5)
  1. ERBITUX [Suspect]
     Indication: COLON CANCER METASTATIC
     Dosage: 24-JUN-2013,08JUL-2013,22-JUL-2013
     Route: 042
     Dates: start: 20130603
  2. COUMADIN [Suspect]
  3. FOLINIC ACID [Suspect]
     Indication: COLON CANCER METASTATIC
     Dates: start: 20130603
  4. FLUOROURACIL [Suspect]
     Indication: COLON CANCER METASTATIC
     Dates: start: 20130603
  5. IRINOTECAN [Suspect]
     Indication: COLON CANCER METASTATIC
     Dates: start: 20130603

REACTIONS (10)
  - Pulmonary oedema [Unknown]
  - Pancytopenia [Unknown]
  - Nausea [Recovered/Resolved]
  - Vomiting [Recovered/Resolved]
  - Asthenia [Recovered/Resolved]
  - Hypophagia [Recovered/Resolved]
  - Dehydration [Recovered/Resolved]
  - Diarrhoea [Recovered/Resolved]
  - International normalised ratio increased [Recovering/Resolving]
  - Rash [Unknown]
